FAERS Safety Report 13436226 (Version 1)
Quarter: 2017Q2

REPORT INFORMATION
  Report Type: Spontaneous
  Country: US (occurrence: US)
  Receive Date: 20170412
  Receipt Date: 20170412
  Transmission Date: 20170830
  Serious: Yes (Hospitalization)
  Sender: FDA-Public Use
  Company Number: None

PATIENT
  Age: 64 Year
  Sex: Male
  Weight: 88.8 kg

DRUGS (23)
  1. SIMETHICONE (DIMETHICONE) [Concomitant]
     Active Substance: DIMETHICONE
  2. SULFAMETHOXAZOLE-TRIMETHOPRIM [Concomitant]
     Active Substance: SULFAMETHOXAZOLE\TRIMETHOPRIM
  3. TAMSULOSIN [Concomitant]
     Active Substance: TAMSULOSIN
  4. VALGANCICLOVIR. [Concomitant]
     Active Substance: VALGANCICLOVIR
  5. INSULIN LISPRO [Concomitant]
     Active Substance: INSULIN LISPRO
  6. PHENOL SPRAY [Concomitant]
     Active Substance: PHENOL
  7. OMEPRAZOLE. [Concomitant]
     Active Substance: OMEPRAZOLE
  8. MAGNESIUM SULFATE 2GRAM/50ML [Suspect]
     Active Substance: MAGNESIUM SULFATE
     Dosage: ONCE IVPB
     Route: 042
     Dates: start: 20170313, end: 20170313
  9. BISACODYL. [Concomitant]
     Active Substance: BISACODYL
  10. CALCIUM CARBONATE. [Concomitant]
     Active Substance: CALCIUM CARBONATE
  11. GABAPEPTIN [Concomitant]
  12. HEPARIN [Concomitant]
     Active Substance: HEPARIN SODIUM
  13. HYDROMORPHONE [Concomitant]
     Active Substance: HYDROMORPHONE
  14. MULTIVITAMIN [Concomitant]
     Active Substance: VITAMINS
  15. NYSTATIN. [Concomitant]
     Active Substance: NYSTATIN
  16. ONDANSETRON [Concomitant]
     Active Substance: ONDANSETRON
  17. MYCOPHENOLATE MOFETIL. [Concomitant]
     Active Substance: MYCOPHENOLATE MOFETIL
  18. PREDNISONE. [Concomitant]
     Active Substance: PREDNISONE
  19. ACETAMINOPHEN. [Concomitant]
     Active Substance: ACETAMINOPHEN
  20. SODIUM CHLORIDE. [Concomitant]
     Active Substance: SODIUM CHLORIDE
  21. SODIUM PHOSPHATE [Concomitant]
     Active Substance: SODIUM PHOSPHATE
  22. TACROLIMUS. [Concomitant]
     Active Substance: TACROLIMUS
  23. DEXTROSE IV [Concomitant]

REACTIONS (3)
  - Hypoaesthesia [None]
  - Paraesthesia [None]
  - Injection site pain [None]

NARRATIVE: CASE EVENT DATE: 20170313
